FAERS Safety Report 14598634 (Version 2)
Quarter: 2018Q2

REPORT INFORMATION
  Report Type: Spontaneous
  Country: JP (occurrence: JP)
  Receive Date: 20180305
  Receipt Date: 20180404
  Transmission Date: 20180711
  Serious: Yes (Death, Hospitalization)
  Sender: FDA-Public Use
  Company Number: JP-ELI_LILLY_AND_COMPANY-JP201708012509

PATIENT
  Age: 54 Year
  Sex: Female
  Weight: 53 kg

DRUGS (36)
  1. NEULEPTIL                          /00038401/ [Concomitant]
     Active Substance: PERICIAZINE
     Indication: DEPRESSION
     Dosage: 5 MG, DAILY
     Route: 048
     Dates: start: 20170607, end: 20170801
  2. SENIRAN [Concomitant]
     Active Substance: BROMAZEPAM
     Indication: INSOMNIA
  3. CONTOMIN                           /00011902/ [Concomitant]
     Active Substance: CHLORPROMAZINE HYDROCHLORIDE
     Indication: DEPRESSION
  4. ETIZOLAM [Concomitant]
     Active Substance: ETIZOLAM
     Indication: INSOMNIA
  5. NEULEPTIL                          /00038401/ [Concomitant]
     Active Substance: PERICIAZINE
     Indication: SCHIZOPHRENIA
  6. PHENOBAL                           /00023201/ [Concomitant]
     Active Substance: PHENOBARBITAL
     Indication: DEPRESSION
     Dosage: 0.4
     Route: 048
     Dates: start: 20170606, end: 20170801
  7. FLUNITRAZEPAM [Concomitant]
     Active Substance: FLUNITRAZEPAM
     Indication: INSOMNIA
     Dosage: 1 MG, UNKNOWN
     Route: 048
     Dates: start: 20170612, end: 20170801
  8. FLUNITRAZEPAM [Concomitant]
     Active Substance: FLUNITRAZEPAM
     Indication: DEPRESSION
  9. ARTANE [Concomitant]
     Active Substance: TRIHEXYPHENIDYL HYDROCHLORIDE
     Indication: INSOMNIA
  10. SENIRAN [Concomitant]
     Active Substance: BROMAZEPAM
     Indication: SCHIZOPHRENIA
  11. HIBERNA [Concomitant]
     Active Substance: PROMETHAZINE HYDROCHLORIDE
     Indication: DEPRESSION
  12. SENIRAN [Concomitant]
     Active Substance: BROMAZEPAM
     Indication: DEPRESSION
     Dosage: 2 MG, UNKNOWN
     Route: 048
     Dates: start: 20170607, end: 20170801
  13. CONTOMIN                           /00011902/ [Concomitant]
     Active Substance: CHLORPROMAZINE HYDROCHLORIDE
     Indication: SCHIZOPHRENIA
     Dosage: 25 MG, UNKNOWN
     Route: 048
     Dates: start: 20170606, end: 20170801
  14. HIBERNA [Concomitant]
     Active Substance: PROMETHAZINE HYDROCHLORIDE
     Indication: SCHIZOPHRENIA
     Dosage: 25 MG, UNKNOWN
     Route: 048
     Dates: start: 20170606, end: 20170801
  15. TRIAZOLAM. [Concomitant]
     Active Substance: TRIAZOLAM
     Indication: INSOMNIA
  16. TRIAZOLAM. [Concomitant]
     Active Substance: TRIAZOLAM
     Indication: SCHIZOPHRENIA
  17. FLUNITRAZEPAM [Concomitant]
     Active Substance: FLUNITRAZEPAM
     Indication: SCHIZOPHRENIA
  18. LUNESTA [Concomitant]
     Active Substance: ESZOPICLONE
     Indication: PRODUCT USED FOR UNKNOWN INDICATION
     Dosage: 1 MG, OTHER
     Route: 048
     Dates: start: 20170704, end: 20170801
  19. OXINORM                            /00045603/ [Concomitant]
     Active Substance: OXYCODONE HYDROCHLORIDE
     Indication: CANCER PAIN
     Dosage: UNK, UNKNOWN
     Route: 065
     Dates: start: 20170626, end: 20170808
  20. RISPERIDONE. [Concomitant]
     Active Substance: RISPERIDONE
     Indication: SCHIZOPHRENIA
  21. PHENOBAL                           /00023201/ [Concomitant]
     Active Substance: PHENOBARBITAL
     Indication: SCHIZOPHRENIA
  22. ETIZOLAM [Concomitant]
     Active Substance: ETIZOLAM
     Indication: SCHIZOPHRENIA
  23. ERBITUX [Suspect]
     Active Substance: CETUXIMAB
     Indication: NASOPHARYNGEAL CANCER
     Dosage: 588.8 MG, INITIAL DOSE
     Route: 041
     Dates: start: 20170613, end: 20170613
  24. ERBITUX [Suspect]
     Active Substance: CETUXIMAB
     Dosage: 250 UNK, UNK
     Route: 041
     Dates: start: 2017, end: 20170718
  25. NEULEPTIL                          /00038401/ [Concomitant]
     Active Substance: PERICIAZINE
     Indication: INSOMNIA
  26. RISPERIDONE. [Concomitant]
     Active Substance: RISPERIDONE
     Indication: DEPRESSION
     Dosage: 2 MG, UNKNOWN
     Route: 048
     Dates: start: 20170606, end: 20170814
  27. TRIAZOLAM. [Concomitant]
     Active Substance: TRIAZOLAM
     Indication: DEPRESSION
     Dosage: 0.25
     Route: 048
     Dates: start: 20170606, end: 20170704
  28. LANSOPRAZOLE. [Concomitant]
     Active Substance: LANSOPRAZOLE
     Indication: GASTRIC ULCER
     Dosage: UNK, DAILY
     Route: 048
     Dates: start: 20170607, end: 20170803
  29. ARTANE [Concomitant]
     Active Substance: TRIHEXYPHENIDYL HYDROCHLORIDE
     Indication: DEPRESSION
     Dosage: 2 MG, UNKNOWN
     Route: 048
     Dates: start: 20170606, end: 20170814
  30. ARTANE [Concomitant]
     Active Substance: TRIHEXYPHENIDYL HYDROCHLORIDE
     Indication: SCHIZOPHRENIA
  31. RISPERIDONE. [Concomitant]
     Active Substance: RISPERIDONE
     Indication: INSOMNIA
  32. CONTOMIN                           /00011902/ [Concomitant]
     Active Substance: CHLORPROMAZINE HYDROCHLORIDE
     Indication: INSOMNIA
  33. HIBERNA [Concomitant]
     Active Substance: PROMETHAZINE HYDROCHLORIDE
     Indication: INSOMNIA
  34. ETIZOLAM [Concomitant]
     Active Substance: ETIZOLAM
     Indication: DEPRESSION
     Dosage: 1 MG, UNKNOWN
     Route: 048
     Dates: start: 20170606, end: 20170615
  35. PHENOBAL                           /00023201/ [Concomitant]
     Active Substance: PHENOBARBITAL
     Indication: INSOMNIA
  36. OXYCODONE [Concomitant]
     Active Substance: OXYCODONE
     Indication: CANCER PAIN
     Dosage: 5 MG, DAILY
     Route: 048
     Dates: start: 20170708, end: 20170802

REACTIONS (9)
  - Pulmonary haemorrhage [Fatal]
  - Staphylococcus test positive [Fatal]
  - Interstitial lung disease [Fatal]
  - Respiratory failure [Fatal]
  - Insomnia [Fatal]
  - Pneumonia streptococcal [Fatal]
  - White blood cell count decreased [Fatal]
  - C-reactive protein increased [Fatal]
  - Acute lung injury [Fatal]

NARRATIVE: CASE EVENT DATE: 201707
